FAERS Safety Report 5470601-0 (Version None)
Quarter: 2007Q3

REPORT INFORMATION
  Report Type: 
  Country: None (occurrence: None)
  Receive Date: 20070928
  Receipt Date: 20070920
  Transmission Date: 20080115
  Serious: Yes (Hospitalization)
  Sender: FDA-Public Use
  Company Number: HQWYE198124JUL07

PATIENT
  Sex: Male

DRUGS (9)
  1. CORDARONE [Suspect]
     Route: 048
     Dates: start: 19980101, end: 20070525
  2. SINTROM [Concomitant]
     Dosage: UNKNOWN
     Route: 048
     Dates: start: 19900101
  3. ASPEGIC 325 [Concomitant]
     Dosage: UNKNOWN
     Route: 048
     Dates: start: 19980101
  4. NITROGLYCERIN [Concomitant]
     Dosage: UNKNOWN
     Route: 065
  5. LASIX [Concomitant]
     Dosage: UNKNOWN
     Route: 048
  6. CORVASAL [Concomitant]
     Dosage: UNKNOWN
     Route: 048
  7. IKOREL [Concomitant]
     Dosage: UNKNOWN
     Route: 048
  8. TAHOR [Suspect]
     Dosage: UNKNOWN
     Route: 048
     Dates: start: 19980101
  9. AMLOR [Concomitant]
     Dosage: UNKNOWN
     Route: 048

REACTIONS (1)
  - PERIPHERAL SENSORY NEUROPATHY [None]
